FAERS Safety Report 9338893 (Version 3)
Quarter: 2013Q4

REPORT INFORMATION
  Report Type: Spontaneous
  Country: JP (occurrence: JP)
  Receive Date: 20130610
  Receipt Date: 20131031
  Transmission Date: 20140711
  Serious: Yes (Hospitalization)
  Sender: FDA-Public Use
  Company Number: JP-ELI_LILLY_AND_COMPANY-JP201306001007

PATIENT
  Age: 72 Year
  Sex: Female
  Weight: 59 kg

DRUGS (4)
  1. GEMZAR [Suspect]
     Indication: FALLOPIAN TUBE CANCER STAGE III
     Dosage: 1625 MG, UNK
     Route: 042
     Dates: start: 20130520, end: 20130520
  2. WARFARIN [Concomitant]
     Dosage: 3.5 MG, UNK
     Route: 048
     Dates: start: 20110720
  3. DIOVAN [Concomitant]
     Dosage: 40 MG, UNK
     Route: 048
     Dates: start: 20110706
  4. MAGLAX [Concomitant]
     Dosage: 1500 MG, UNK
     Route: 048
     Dates: start: 20110713

REACTIONS (2)
  - Pulmonary embolism [Recovered/Resolved]
  - Platelet count decreased [Recovered/Resolved]
